FAERS Safety Report 5251540-7 (Version None)
Quarter: 2007Q1

REPORT INFORMATION
  Report Type: 
  Country: None (occurrence: None)
  Receive Date: 20070228
  Receipt Date: 20060524
  Transmission Date: 20070707
  Serious: No
  Sender: FDA-Public Use
  Company Number: US-GLAXOSMITHKLINE-A0606819A

PATIENT
  Age: 43 Year
  Sex: Female

DRUGS (2)
  1. LAMICTAL [Suspect]
     Indication: POST-TRAUMATIC STRESS DISORDER
     Dosage: 12.5MG PER DAY
     Route: 048
     Dates: start: 20060522
  2. NO CONCURRENT MEDICATION [Concomitant]

REACTIONS (5)
  - DRUG LEVEL INCREASED [None]
  - IRRITABILITY [None]
  - NAUSEA [None]
  - TREMOR [None]
  - WRONG TECHNIQUE IN DRUG USAGE PROCESS [None]
